FAERS Safety Report 24680166 (Version 1)
Quarter: 2024Q4

REPORT INFORMATION
  Report Type: Spontaneous
  Country: US (occurrence: US)
  Receive Date: 20241129
  Receipt Date: 20241129
  Transmission Date: 20250114
  Serious: Yes (Life-Threatening, Other)
  Sender: BRACCO
  Company Number: US-BRACCO-2024US00706

PATIENT
  Age: 60 Year
  Sex: Male

DRUGS (27)
  1. LUMASON [Suspect]
     Active Substance: SULFUR HEXAFLUORIDE
     Indication: Echocardiogram
     Dosage: 2 ML, SINGLE
     Route: 042
     Dates: start: 20240208, end: 20240208
  2. LUMASON [Suspect]
     Active Substance: SULFUR HEXAFLUORIDE
     Indication: Echocardiogram
     Dosage: 2 ML, SINGLE
     Route: 042
     Dates: start: 20240208, end: 20240208
  3. LUMASON [Suspect]
     Active Substance: SULFUR HEXAFLUORIDE
     Indication: Echocardiogram
     Dosage: 2 ML, SINGLE
     Route: 042
     Dates: start: 20240208, end: 20240208
  4. LUMASON [Suspect]
     Active Substance: SULFUR HEXAFLUORIDE
     Indication: Echocardiogram
     Dosage: 1 ML, SINGLE
     Route: 042
     Dates: start: 20240208, end: 20240208
  5. LUMASON [Suspect]
     Active Substance: SULFUR HEXAFLUORIDE
     Indication: Echocardiogram
     Dosage: 1 ML, SINGLE
     Route: 042
     Dates: start: 20240208, end: 20240208
  6. LUMASON [Suspect]
     Active Substance: SULFUR HEXAFLUORIDE
     Indication: Echocardiogram
     Dosage: 1 ML, SINGLE
     Route: 042
     Dates: start: 20240208, end: 20240208
  7. ALBUTEROL SULFATE [Concomitant]
     Active Substance: ALBUTEROL SULFATE
  8. ALLOPURINOL [Concomitant]
     Active Substance: ALLOPURINOL
  9. ASPIRIN [Concomitant]
     Active Substance: ASPIRIN
  10. COUMADIN [Concomitant]
     Active Substance: WARFARIN SODIUM
  11. DIGOXIN [Concomitant]
     Active Substance: DIGOXIN
  12. DILTIAZEM [Concomitant]
     Active Substance: DILTIAZEM
  13. HEPARIN [Concomitant]
     Active Substance: HEPARIN SODIUM
  14. IPRATROPIUM [Concomitant]
     Active Substance: IPRATROPIUM
  15. LASIX [Concomitant]
     Active Substance: FUROSEMIDE
  16. LIPITOR [Concomitant]
     Active Substance: ATORVASTATIN CALCIUM
  17. LOPRESSOR [Concomitant]
     Active Substance: METOPROLOL TARTRATE
  18. MAGNESIUM [Concomitant]
     Active Substance: MAGNESIUM
     Route: 042
  19. METFORMIN [Concomitant]
     Active Substance: METFORMIN HYDROCHLORIDE
  20. MIRALAX [Concomitant]
     Active Substance: POLYETHYLENE GLYCOL 3350
  21. OMEPRAZOLE [Concomitant]
     Active Substance: OMEPRAZOLE
  22. OXYGEN [Concomitant]
     Active Substance: OXYGEN
     Dosage: 6 L VIA NASAL CANULA
  23. OXYGEN [Concomitant]
     Active Substance: OXYGEN
     Dosage: 50% HIGH FLOW NASAL CANULA
  24. POTASSIUM CHLORIDE [Concomitant]
     Active Substance: POTASSIUM CHLORIDE
  25. TORSEMIDE [Concomitant]
     Active Substance: TORSEMIDE
  26. TYLENOL [Concomitant]
     Active Substance: ACETAMINOPHEN
  27. CYANOCOBALAMIN [Concomitant]
     Active Substance: CYANOCOBALAMIN

REACTIONS (1)
  - Anaphylactic reaction [Recovered/Resolved]

NARRATIVE: CASE EVENT DATE: 20240208
